FAERS Safety Report 6172129-1 (Version None)
Quarter: 2009Q2

REPORT INFORMATION
  Report Type: 
  Country: None (occurrence: None)
  Receive Date: 20090429
  Receipt Date: 20090424
  Transmission Date: 20091009
  Serious: Yes (Other)
  Sender: FDA-Public Use
  Company Number: BR-PFIZER INC-2008048933

PATIENT
  Sex: Male

DRUGS (1)
  1. MARAX [Suspect]
     Indication: ASTHMA
     Route: 048

REACTIONS (2)
  - DRUG DOSE OMISSION [None]
  - RESPIRATORY DISTRESS [None]
